FAERS Safety Report 12958593 (Version 1)
Quarter: 2016Q4

REPORT INFORMATION
  Report Type: Spontaneous
  Country: US (occurrence: US)
  Receive Date: 20161121
  Receipt Date: 20161121
  Transmission Date: 20170207
  Serious: No
  Sender: FDA-Public Use
  Company Number: US-TEVA-652310USA

PATIENT
  Sex: Female
  Weight: 54.48 kg

DRUGS (1)
  1. BUDESONIDE. [Suspect]
     Active Substance: BUDESONIDE
     Indication: SINUS DISORDER
     Route: 045

REACTIONS (5)
  - Dyspnoea [Unknown]
  - Off label use [Unknown]
  - Dysphonia [Unknown]
  - Drug prescribing error [Unknown]
  - Cough [Unknown]
